FAERS Safety Report 4748764-1 (Version None)
Quarter: 2005Q3

REPORT INFORMATION
  Report Type: 
  Country: None (occurrence: None)
  Receive Date: 20050812
  Receipt Date: 20050615
  Transmission Date: 20060218
  Serious: Yes (Hospitalization)
  Sender: FDA-Public Use
  Company Number: 408060

PATIENT
  Age: 47 Year
  Sex: Female

DRUGS (4)
  1. PEGASYS [Suspect]
     Indication: HEPATITIS C VIRUS
     Dates: start: 20050301
  2. COPEGUS [Suspect]
     Indication: HEPATITIS C VIRUS
     Dosage: ORAL
     Route: 048
     Dates: start: 20050301
  3. CLOZAPINE [Suspect]
     Indication: SCHIZOPHRENIA
     Dates: start: 19900615, end: 20050515
  4. SEROQUEL [Concomitant]

REACTIONS (4)
  - ABNORMAL BEHAVIOUR [None]
  - FEAR [None]
  - SELF-INJURIOUS IDEATION [None]
  - WHITE BLOOD CELL COUNT DECREASED [None]
